FAERS Safety Report 10055238 (Version 1)
Quarter: 2014Q2

REPORT INFORMATION
  Report Type: Spontaneous
  Country: CL (occurrence: CL)
  Receive Date: 20140403
  Receipt Date: 20140403
  Transmission Date: 20141212
  Serious: Yes (Other)
  Sender: FDA-Public Use
  Company Number: CL-PFIZER INC-2014088562

PATIENT
  Age: 86 Year
  Sex: Male

DRUGS (1)
  1. XALATAN [Suspect]
     Indication: ANGLE CLOSURE GLAUCOMA
     Dosage: 1 DROP, 1X/DAY
     Route: 047
     Dates: start: 2004

REACTIONS (4)
  - Memory impairment [Not Recovered/Not Resolved]
  - Deafness [Not Recovered/Not Resolved]
  - Visual acuity reduced [Not Recovered/Not Resolved]
  - Laboratory test abnormal [Not Recovered/Not Resolved]
